FAERS Safety Report 7237820-4 (Version None)
Quarter: 2011Q1

REPORT INFORMATION
  Report Type: 
  Country: None (occurrence: None)
  Receive Date: 20110121
  Receipt Date: 20110117
  Transmission Date: 20110831
  Serious: Yes (Other)
  Sender: FDA-Public Use
  Company Number: FR-ROCHE-753599

PATIENT
  Sex: Female

DRUGS (2)
  1. BRICANYL [Concomitant]
  2. TAMIFLU [Suspect]
     Route: 048
     Dates: start: 20101212, end: 20101219

REACTIONS (3)
  - DEPRESSED LEVEL OF CONSCIOUSNESS [None]
  - AGITATION [None]
  - CONFUSIONAL STATE [None]
